FAERS Safety Report 4489169-0 (Version None)
Quarter: 2004Q4

REPORT INFORMATION
  Report Type: 
  Country: None (occurrence: None)
  Receive Date: 20041029
  Receipt Date: 20041020
  Transmission Date: 20050328
  Serious: Yes (Other)
  Sender: FDA-Public Use
  Company Number: VE-BRISTOL-MYERS SQUIBB COMPANY-12739991

PATIENT
  Age: 42 Year
  Sex: Male

DRUGS (3)
  1. ATAZANAVIR [Suspect]
     Route: 048
  2. LAMIVUDINE + ZIDOVUDINE [Concomitant]
     Dosage: LAMIVUDINE 150 MG, ZIDOVUDINE 300 MG
     Dates: start: 20040813
  3. RITONAVIR [Concomitant]
     Dates: start: 20040813

REACTIONS (2)
  - HAEMATURIA [None]
  - RENAL COLIC [None]
